FAERS Safety Report 8574279 (Version 2)
Quarter: 2012Q4

REPORT INFORMATION
  Report Type: 
  Country: US (occurrence: US)
  Receive Date: 20120522
  Receipt Date: 20120926
  Transmission Date: 20130627
  Serious: Yes (Death, Hospitalization)
  Sender: FDA-Public Use
  Company Number: US-ACTELION-A-NJ2011-58733

PATIENT
  Age: 62 Year
  Sex: Female

DRUGS (7)
  1. VELETRI [Suspect]
     Indication: PULMONARY ARTERIAL HYPERTENSION
     Dosage: 8 ng/kg, per min
     Route: 041
     Dates: start: 20111201, end: 20120508
  2. TRACLEER [Suspect]
     Indication: PULMONARY ARTERIAL HYPERTENSION
     Dosage: UNK
     Route: 048
     Dates: start: 200404, end: 20120509
  3. SILDENAFIL [Concomitant]
  4. COUMADIN [Concomitant]
  5. CALCIUM CHANNEL BLOCKERS [Concomitant]
  6. DIGOXIN [Concomitant]
  7. OXYGEN [Concomitant]

REACTIONS (7)
  - Hypoxia [Fatal]
  - Dyspnoea [Fatal]
  - Pain in jaw [Recovering/Resolving]
  - Flushing [Recovering/Resolving]
  - Hypotension [Unknown]
  - Dizziness exertional [Unknown]
  - Headache [Recovering/Resolving]
